FAERS Safety Report 9816513 (Version 3)
Quarter: 2014Q2

REPORT INFORMATION
  Report Type: Spontaneous
  Country: FR (occurrence: DZ)
  Receive Date: 20140114
  Receipt Date: 20140530
  Transmission Date: 20141212
  Serious: Yes (Death)
  Sender: FDA-Public Use
  Company Number: DZ-MYLANLABS-2014S1000708

PATIENT
  Age: 6 Year
  Sex: Male

DRUGS (12)
  1. CYSTAGON [Suspect]
     Dosage: 1300 GM/M2
     Dates: start: 20130708, end: 2013
  2. ALFACALCIDOL [Concomitant]
     Dates: start: 20110609, end: 2013
  3. ERGOCALCIFEROL [Concomitant]
     Dosage: 5 DROPS DAILY
  4. POTASSIUM CHLORIDE [Concomitant]
     Dosage: 2 AMPULES THREE TIMES DAILY
  5. BICARBONATE [Concomitant]
     Dosage: 42%, THREE TIMES A DAY
  6. MAGNESIUM SULFATE [Concomitant]
     Dosage: 1 AMPULE THREE TIMES DAILY
  7. CALCIUM GLUCONATE [Concomitant]
     Dosage: 2 AMPULES THREE TIMES DAILY
  8. PHOSPHORUS [Concomitant]
     Dosage: PHOSPHORE
  9. VITAMIN B9 [Concomitant]
     Dosage: FOLDINE, ONE TABLET EVERY 2 DAYS
  10. FUMAFER [Concomitant]
     Dosage: ONE MESURING SPOON THREE TIMES DAILY
  11. ERYTHROPOIETIN [Concomitant]
     Dosage: ERYTHROPOIETINE, ONE INJECTION EVERY WEEK
     Route: 058
  12. LEVOTHYROX [Concomitant]
     Dosage: 0.5 TABLET DAILY

REACTIONS (5)
  - Respiratory disorder [Fatal]
  - Growth retardation [Fatal]
  - Nephropathy [Fatal]
  - Renal failure chronic [Fatal]
  - Hypothyroidism [Fatal]
